FAERS Safety Report 4332901-7 (Version None)
Quarter: 2004Q1

REPORT INFORMATION
  Report Type: 
  Country: None (occurrence: None)
  Receive Date: 20040330
  Receipt Date: 20021231
  Transmission Date: 20041129
  Serious: Yes (Hospitalization, Other)
  Sender: FDA-Public Use
  Company Number: KII-2002-0008676

PATIENT
  Age: 45 Year
  Sex: Male

DRUGS (3)
  1. OXYCONTIN [Suspect]
  2. LORTAB [Suspect]
  3. ANTIPSYCHOTICS [Concomitant]

REACTIONS (2)
  - POLYSUBSTANCE ABUSE [None]
  - PSYCHOTIC DISORDER [None]
